FAERS Safety Report 14973348 (Version 2)
Quarter: 2018Q2

REPORT INFORMATION
  Report Type: Spontaneous
  Country: US (occurrence: US)
  Receive Date: 20180605
  Receipt Date: 20180608
  Transmission Date: 20180711
  Serious: No
  Sender: FDA-Public Use
  Company Number: US-TEVA-2018-US-900600

PATIENT
  Sex: Female

DRUGS (1)
  1. OXYTROL [Suspect]
     Active Substance: OXYBUTYNIN
     Indication: CYSTITIS INTERSTITIAL
     Dosage: 1 PATCH AS DIRECTED ON THE BOX
     Route: 062

REACTIONS (5)
  - Drug ineffective [Unknown]
  - Off label use [Unknown]
  - Product adhesion issue [Unknown]
  - Expired product administered [Unknown]
  - Drug ineffective for unapproved indication [Unknown]
